FAERS Safety Report 13918930 (Version 5)
Quarter: 2017Q4

REPORT INFORMATION
  Report Type: Report from Study
  Country: None (occurrence: US)
  Receive Date: 20170830
  Receipt Date: 20171122
  Transmission Date: 20180320
  Serious: Yes (Other)
  Sender: FDA-Public Use
  Company Number: US-ABBVIE-17K-163-2038361-00

PATIENT
  Sex: Female
  Weight: 119.4 kg

DRUGS (2)
  1. HUMIRA [Suspect]
     Active Substance: ADALIMUMAB
     Route: 058
     Dates: start: 20170515
  2. HUMIRA [Suspect]
     Active Substance: ADALIMUMAB
     Indication: RHEUMATOID ARTHRITIS
     Route: 058
     Dates: start: 20151013, end: 201704

REACTIONS (12)
  - Pain [Unknown]
  - Arthralgia [Unknown]
  - Memory impairment [Not Recovered/Not Resolved]
  - Drug ineffective [Unknown]
  - Restless legs syndrome [Unknown]
  - Hepatic enzyme increased [Unknown]
  - Muscle spasms [Unknown]
  - Back disorder [Unknown]
  - Ingrowing nail [Recovered/Resolved]
  - Hepatic enzyme decreased [Not Recovered/Not Resolved]
  - Pain in extremity [Unknown]
  - Stress [Unknown]

NARRATIVE: CASE EVENT DATE: 2017
